FAERS Safety Report 4674304-1 (Version None)
Quarter: 2005Q2

REPORT INFORMATION
  Report Type: 
  Country: None (occurrence: None)
  Receive Date: 20050524
  Receipt Date: 20050505
  Transmission Date: 20051028
  Serious: Yes (Other)
  Sender: FDA-Public Use
  Company Number: USA050496073

PATIENT
  Age: 73 Year
  Sex: Female

DRUGS (6)
  1. FORTEO [Suspect]
     Indication: OSTEOPOROSIS
     Dosage: 20 UG DAY
     Dates: start: 20041030
  2. PLAVIX [Concomitant]
  3. PRAVACHOL [Concomitant]
  4. APO-METOPROLOL(METOPROLOL TARTRATE) [Concomitant]
  5. TUMS (CALCIUM CARBONATE) [Concomitant]
  6. MULTIVITAMIN [Concomitant]

REACTIONS (5)
  - FALL [None]
  - FEELING ABNORMAL [None]
  - LOSS OF CONSCIOUSNESS [None]
  - MUSCLE SPASMS [None]
  - PHARMACEUTICAL PRODUCT COMPLAINT [None]
